FAERS Safety Report 9672055 (Version 3)
Quarter: 2013Q4

REPORT INFORMATION
  Report Type: Spontaneous
  Country: JP (occurrence: None)
  Receive Date: 20131104
  Receipt Date: 20131129
  Transmission Date: 20140711
  Serious: Yes (Hospitalization)
  Sender: FDA-Public Use
  Company Number: JP-2013-14662

PATIENT
  Age: 55 Year
  Sex: Female
  Weight: 53.8 kg

DRUGS (4)
  1. OPC-41061 [Suspect]
     Indication: GASTRIC CANCER
     Dosage: 3.75X1, 7.5X1, 15X4, ORAL
     Route: 048
     Dates: start: 20131008, end: 20131013
  2. NC-LASIX [Suspect]
     Indication: MALIGNANT ASCITES
     Dosage: 80 MG MILLIGRAM(S), QD, ORAL
     Route: 048
     Dates: start: 20130827, end: 20131013
  3. ALDACTONE-A [Suspect]
     Indication: MALIGNANT ASCITES
     Dosage: 50 MG MILLIGRAM(S), BID, ORAL
     Route: 048
     Dates: start: 20130827, end: 20131013
  4. FLUID (BARIUM SULFATE) [Concomitant]

REACTIONS (9)
  - Condition aggravated [None]
  - Dehydration [None]
  - Blood creatinine increased [None]
  - Decreased appetite [None]
  - Ascites [None]
  - Decreased appetite [None]
  - Vomiting [None]
  - Renal impairment [None]
  - General physical health deterioration [None]
